FAERS Safety Report 20444881 (Version 1)
Quarter: 2022Q1

REPORT INFORMATION
  Report Type: Spontaneous
  Country: US (occurrence: None)
  Receive Date: 20220208
  Receipt Date: 20220208
  Transmission Date: 20220424
  Serious: No
  Sender: FDA-Public Use
  Company Number: 2022A047204

PATIENT
  Sex: Female
  Weight: 69.4 kg

DRUGS (1)
  1. FASENRA [Suspect]
     Active Substance: BENRALIZUMAB
     Indication: Asthma
     Dosage: 30.0MG UNKNOWN
     Route: 058
     Dates: start: 2021

REACTIONS (5)
  - Malaise [Unknown]
  - Injection site pain [Unknown]
  - Injection site injury [Unknown]
  - Drug ineffective [Unknown]
  - Incorrect dose administered by device [Unknown]
